FAERS Safety Report 8659948 (Version 2)
Quarter: 2012Q4

REPORT INFORMATION
  Report Type: Report from Study
  Country: DE (occurrence: DE)
  Receive Date: 20120711
  Receipt Date: 20121203
  Transmission Date: 20130627
  Serious: Yes (Death, Other)
  Sender: FDA-Public Use
  Company Number: DE-SANOFI-AVENTIS-2012SA048092

PATIENT
  Age: 65 Year
  Sex: Male

DRUGS (10)
  1. OXALIPLATIN [Suspect]
     Indication: RECTAL CANCER
     Dosage: frequency: 90 mg/m2 i.v. on day 1, 8, 15, 22 and 99.
     Route: 042
     Dates: start: 20110214, end: 20110314
  2. CAPECITABINE [Suspect]
     Indication: RECTAL CANCER
     Dosage: 815 mg/m2 BID Day 1- 33 w/o weekends + optional boost
     Route: 048
     Dates: start: 20110214, end: 20110323
  3. THERAPEUTIC RADIOPHARMACEUTICALS [Suspect]
     Indication: RECTAL CANCER
     Route: 065
     Dates: start: 20110214, end: 20110323
  4. ALISKIREN [Concomitant]
     Indication: HYPERTENSION
     Route: 048
  5. ISOKET [Concomitant]
     Indication: CORONARY ANGIOPLASTY
     Route: 048
  6. NEBILET [Concomitant]
     Indication: HYPERTENSION
     Route: 048
  7. LERCANIDIPINE [Concomitant]
     Indication: HYPERTENSION
     Route: 048
  8. ALLOPURINOL [Concomitant]
     Indication: GOUT
     Route: 048
  9. INEGY [Concomitant]
     Indication: HYPERCHOLESTEROLEMIA
     Route: 048
  10. MARCUMAR [Concomitant]
     Indication: CORONARY ANGIOPLASTY
     Route: 048

REACTIONS (4)
  - Multi-organ failure [Fatal]
  - Acute abdomen [Not Recovered/Not Resolved]
  - Splenic rupture [Recovered/Resolved]
  - Haemoglobin decreased [Not Recovered/Not Resolved]
